FAERS Safety Report 12730694 (Version 1)
Quarter: 2016Q3

REPORT INFORMATION
  Report Type: Spontaneous
  Country: JP (occurrence: JP)
  Receive Date: 20160910
  Receipt Date: 20160910
  Transmission Date: 20161109
  Serious: Yes (Hospitalization, Other)
  Sender: FDA-Public Use
  Company Number: JP-ACCORD-043754

PATIENT
  Age: 53 Year
  Sex: Female

DRUGS (11)
  1. CLONAZEPAM. [Concomitant]
     Active Substance: CLONAZEPAM
  2. BROTIZOLAM [Concomitant]
     Active Substance: BROTIZOLAM
  3. BIPERIDEN [Concomitant]
     Active Substance: BIPERIDEN
     Indication: PARKINSON^S DISEASE
     Dates: start: 2013
  4. PEROSPIRONE [Concomitant]
     Active Substance: PEROSPIRONE
     Dosage: 8-16 MG
     Dates: start: 2013
  5. RISPERIDONE. [Suspect]
     Active Substance: RISPERIDONE
     Indication: PRODUCT USED FOR UNKNOWN INDICATION
  6. TIAPRIDE [Concomitant]
     Active Substance: TIAPRIDE
     Dosage: 50-150 MG
     Dates: start: 2013
  7. OLANZAPINE. [Interacting]
     Active Substance: OLANZAPINE
     Indication: PRODUCT USED FOR UNKNOWN INDICATION
     Dosage: 5 - 10 MG
     Dates: start: 2013
  8. ROTIGOTINE [Suspect]
     Active Substance: ROTIGOTINE
     Indication: PRODUCT USED FOR UNKNOWN INDICATION
     Dates: start: 2014
  9. CARBIDOPA/LEVODOPA [Suspect]
     Active Substance: CARBIDOPA\LEVODOPA
     Indication: DEMENTIA WITH LEWY BODIES
     Dates: start: 201405
  10. QUETIAPINE. [Suspect]
     Active Substance: QUETIAPINE
     Indication: PRODUCT USED FOR UNKNOWN INDICATION
  11. ROPINIROLE/ROPINIROLE HYDROCHLORIDE [Suspect]
     Active Substance: ROPINIROLE HYDROCHLORIDE
     Indication: DEMENTIA WITH LEWY BODIES
     Dosage: EXTENDED-RELEASE TABLETS
     Dates: start: 201411

REACTIONS (10)
  - Dyskinesia [Recovering/Resolving]
  - Altered state of consciousness [Recovering/Resolving]
  - Oromandibular dystonia [Recovering/Resolving]
  - Condition aggravated [Recovering/Resolving]
  - Drug hypersensitivity [Recovering/Resolving]
  - Irritability [Recovered/Resolved]
  - Drug interaction [Unknown]
  - Restlessness [Recovered/Resolved]
  - Sexual dysfunction [Recovered/Resolved]
  - Tongue biting [None]
